FAERS Safety Report 16658474 (Version 1)
Quarter: 2019Q3

REPORT INFORMATION
  Report Type: Other
  Country: US (occurrence: US)
  Receive Date: 20190801
  Receipt Date: 20190801
  Transmission Date: 20191004
  Serious: No
  Sender: FDA-Public Use
  Company Number: US-LEADIANT BIOSCIENCES, INC.-2019STPI000325

PATIENT
  Sex: Male

DRUGS (3)
  1. ACYCLOVIR ABBOTT VIAL [Concomitant]
  2. MULTIVITAMIN + MINERAL [Concomitant]
     Active Substance: MINERALS\VITAMINS
  3. REVCOVI [Suspect]
     Active Substance: ELAPEGADEMASE-LVLR
     Indication: COMBINED IMMUNODEFICIENCY
     Dosage: 16.8 MILLIGRAM TWICE WEEKLY (3 VILA SMON AND 4 VIALS THURS)
     Route: 030
     Dates: start: 20190403

REACTIONS (1)
  - Depression [Not Recovered/Not Resolved]
